FAERS Safety Report 6507970-6 (Version None)
Quarter: 2009Q4

REPORT INFORMATION
  Report Type: 
  Country: None (occurrence: None)
  Receive Date: 20091221
  Receipt Date: 20091214
  Transmission Date: 20100525
  Serious: Yes (Other)
  Sender: FDA-Public Use
  Company Number: D0065534A

PATIENT
  Age: 5 Year
  Sex: Female

DRUGS (2)
  1. VIANI [Suspect]
     Route: 055
  2. SINGULAIR [Concomitant]
     Route: 055

REACTIONS (4)
  - ASTHMA [None]
  - COUGH [None]
  - DRUG INEFFECTIVE [None]
  - INFECTION [None]
